FAERS Safety Report 8614838-8 (Version None)
Quarter: 2012Q3

REPORT INFORMATION
  Report Type: 
  Country: None (occurrence: None)
  Receive Date: 20120823
  Receipt Date: 20120820
  Transmission Date: 20120928
  Serious: Yes (Other)
  Sender: FDA-Public Use
  Company Number: US-PFIZER INC-2012189493

PATIENT
  Age: 31 Year
  Sex: Female
  Weight: 61.224 kg

DRUGS (3)
  1. CHANTIX [Suspect]
     Indication: SMOKING CESSATION THERAPY
     Dosage: UNK
     Route: 048
     Dates: start: 20090101
  2. CHANTIX [Suspect]
     Dosage: 1 MG, 2X/DAY
     Route: 048
     Dates: end: 20120501
  3. CHANTIX [Suspect]
     Dosage: 0.5 MG, 1X/DAY
     Route: 048
     Dates: start: 20120401

REACTIONS (11)
  - MAJOR DEPRESSION [None]
  - ACTIVITIES OF DAILY LIVING IMPAIRED [None]
  - PANIC REACTION [None]
  - ANXIETY [None]
  - DRUG INTOLERANCE [None]
  - MENTAL DISORDER [None]
  - PSYCHIATRIC SYMPTOM [None]
  - FEELING ABNORMAL [None]
  - PALPITATIONS [None]
  - THINKING ABNORMAL [None]
  - CRYING [None]
